FAERS Safety Report 4640705-0 (Version None)
Quarter: 2005Q2

REPORT INFORMATION
  Report Type: 
  Country: None (occurrence: None)
  Receive Date: 20050419
  Receipt Date: 20050307
  Transmission Date: 20051028
  Serious: Yes (Hospitalization, Other)
  Sender: FDA-Public Use
  Company Number: 006#1#2005-00008

PATIENT
  Age: 56 Year
  Sex: Male

DRUGS (1)
  1. EDEX [Suspect]
     Indication: ERECTILE DYSFUNCTION
     Dosage: 2.5MCG 2 IN 1 WEEK(S) INTRACAVERNOUS
     Route: 017
     Dates: start: 20050203, end: 20050301

REACTIONS (7)
  - APHASIA [None]
  - ASTHENIA [None]
  - DEPRESSED LEVEL OF CONSCIOUSNESS [None]
  - ERECTION INCREASED [None]
  - FORMICATION [None]
  - PARAESTHESIA [None]
  - PSEUDOPARALYSIS [None]
